FAERS Safety Report 18620605 (Version 10)
Quarter: 2022Q1

REPORT INFORMATION
  Report Type: Report from Study
  Country: AT (occurrence: AT)
  Receive Date: 20201215
  Receipt Date: 20220110
  Transmission Date: 20220423
  Serious: Yes (Hospitalization, Other)
  Sender: FDA-Public Use
  Company Number: AT-ROCHE-2720022

PATIENT
  Age: 65 Year
  Sex: Female
  Weight: 89 kg

DRUGS (60)
  1. TRASTUZUMAB [Suspect]
     Active Substance: TRASTUZUMAB
     Indication: Breast cancer metastatic
     Dosage: MOST RECENT DOSE PRIOR TO THE EVENT: 14/JUL/2017, 08/JUN/2018, 23/JUL/2018, 08/JUN/2018
     Route: 041
     Dates: start: 20170324, end: 20170324
  2. TRASTUZUMAB [Suspect]
     Active Substance: TRASTUZUMAB
     Dosage: 712 MILLIGRAM, Q3W
     Route: 042
     Dates: start: 20170324, end: 20180723
  3. TRASTUZUMAB [Suspect]
     Active Substance: TRASTUZUMAB
     Dosage: 438 MILLIGRAM, Q3W
     Route: 041
     Dates: start: 20180926, end: 20180926
  4. TRASTUZUMAB [Suspect]
     Active Substance: TRASTUZUMAB
     Dosage: 438 MILLIGRAM, Q3W
     Route: 041
     Dates: start: 20181017, end: 20181017
  5. TRASTUZUMAB [Suspect]
     Active Substance: TRASTUZUMAB
     Dosage: 420 MILLIGRAM, Q3W
     Route: 041
     Dates: start: 20181128, end: 20181128
  6. TRASTUZUMAB [Suspect]
     Active Substance: TRASTUZUMAB
     Dosage: ON 24/APR/2020, MOST RECENT DOSE
     Route: 041
     Dates: start: 20181219
  7. TRASTUZUMAB [Suspect]
     Active Substance: TRASTUZUMAB
     Dosage: 462 MILLIGRAM, Q3W
     Route: 042
     Dates: start: 20180608, end: 20180608
  8. TRASTUZUMAB [Suspect]
     Active Substance: TRASTUZUMAB
     Dosage: 474 MILLIGRAM, Q3W
     Route: 042
     Dates: start: 20171213, end: 20180514
  9. TRASTUZUMAB [Suspect]
     Active Substance: TRASTUZUMAB
     Dosage: 534 MILLIGRAM, Q3W
     Route: 042
     Dates: start: 20170414, end: 20170619
  10. TRASTUZUMAB [Suspect]
     Active Substance: TRASTUZUMAB
     Dosage: 480 MILLIGRAM, Q3W
     Route: 042
     Dates: start: 20170828, end: 20171030
  11. TRASTUZUMAB [Suspect]
     Active Substance: TRASTUZUMAB
     Dosage: 450 MILLIGRAM, Q3W
     Route: 042
     Dates: start: 20180723, end: 20180904
  12. TRASTUZUMAB [Suspect]
     Active Substance: TRASTUZUMAB
     Dosage: 534 MILLIGRAM, Q3W
     Route: 042
     Dates: start: 20170714, end: 20170804
  13. TRASTUZUMAB [Suspect]
     Active Substance: TRASTUZUMAB
     Dosage: 450 MILLIGRAM, Q3W
     Route: 042
     Dates: start: 20200515
  14. TRASTUZUMAB [Suspect]
     Active Substance: TRASTUZUMAB
     Dosage: 408 MILLIGRAM, Q3W
     Route: 042
     Dates: start: 20181219, end: 20200424
  15. TRASTUZUMAB [Suspect]
     Active Substance: TRASTUZUMAB
     Dosage: 712 MILLIGRAM, Q3W
     Route: 042
     Dates: start: 20170324, end: 20170324
  16. FULVESTRANT [Suspect]
     Active Substance: FULVESTRANT
     Indication: Breast cancer metastatic
     Dosage: MOST RECENT DOSE PRIOR TO THE EVENT: 26/DEC/2018
     Route: 030
     Dates: start: 20181128
  17. FULVESTRANT [Suspect]
     Active Substance: FULVESTRANT
     Indication: Breast cancer metastatic
     Dosage: 500 MILLIGRAM, BIWEEKLY
     Route: 030
     Dates: start: 20181226
  18. DOCETAXEL [Suspect]
     Active Substance: DOCETAXEL
     Indication: Breast cancer metastatic
     Dosage: 106.22 MILLIGRAM, Q3W
     Route: 042
     Dates: start: 20181017, end: 20181017
  19. DOCETAXEL [Suspect]
     Active Substance: DOCETAXEL
     Dosage: 137 MILLIGRAM (DATE OF MOST RECENT DOSE: 23/JUL/2018)
     Route: 042
     Dates: start: 20180608, end: 20180608
  20. DOCETAXEL [Suspect]
     Active Substance: DOCETAXEL
     Dosage: 132.78 MILLIGRAM, Q3W
     Route: 042
     Dates: start: 20180926, end: 20180926
  21. DOCETAXEL [Suspect]
     Active Substance: DOCETAXEL
     Dosage: 134.32 MILLIGRAM, Q3W
     Route: 042
     Dates: start: 20180723, end: 20180904
  22. PERTUZUMAB [Suspect]
     Active Substance: PERTUZUMAB
     Indication: Breast cancer metastatic
     Dosage: 840 MILLIGRAM, Q3W(MOST RECENT DOSE PRIOR TO THE EVENT: 14/JUL/2017, 13/DEC/2017, 23/JUL/2018)
     Route: 042
     Dates: start: 20170324, end: 20170324
  23. PERTUZUMAB [Suspect]
     Active Substance: PERTUZUMAB
     Dosage: 420 MILLIGRAM, Q3W
     Route: 042
     Dates: start: 20180723
  24. PERTUZUMAB [Suspect]
     Active Substance: PERTUZUMAB
     Dosage: 420 MILLIGRAM, Q3W
     Route: 042
     Dates: start: 20171223, end: 20180608
  25. PERTUZUMAB [Suspect]
     Active Substance: PERTUZUMAB
     Dosage: 420 MILLIGRAM, Q3W
     Route: 042
     Dates: start: 20170414, end: 20170619
  26. PERTUZUMAB [Suspect]
     Active Substance: PERTUZUMAB
     Dosage: 420 MILLIGRAM, Q3W
     Route: 042
     Dates: start: 20170714, end: 20171030
  27. PERTUZUMAB [Suspect]
     Active Substance: PERTUZUMAB
     Dosage: 420 MILLIGRAM, Q3W
     Route: 042
     Dates: start: 20171213, end: 20180608
  28. ANASTROZOLE [Suspect]
     Active Substance: ANASTROZOLE
     Indication: Breast cancer metastatic
     Dosage: MOST RECENT DOSE PRIOR TO AE 14/MAY/2018
     Route: 048
     Dates: start: 20170324
  29. ARIMIDEX [Suspect]
     Active Substance: ANASTROZOLE
     Indication: Breast cancer metastatic
     Dosage: 1 MILLIGRAM, QD
     Route: 048
     Dates: start: 20170324, end: 20180514
  30. ARIMIDEX [Suspect]
     Active Substance: ANASTROZOLE
     Indication: HER2 positive breast cancer
  31. HERCEPTIN [Suspect]
     Active Substance: TRASTUZUMAB
     Indication: Breast cancer
     Dosage: 712 MILLIGRAM, Q3W
     Route: 042
     Dates: start: 20170324
  32. TAXOTERE [Suspect]
     Active Substance: DOCETAXEL
     Indication: HER2 positive breast cancer
     Dosage: 137 MILLIGRAM, Q3W, DATE OF MOST RECENT DOSE 23-JUL-2018
     Route: 042
     Dates: start: 20180608
  33. DEXAMETHASONE [Concomitant]
     Active Substance: DEXAMETHASONE
     Dosage: ONGOING = NOT CHECKED
     Dates: start: 20181017, end: 20181017
  34. DEXAMETHASONE [Concomitant]
     Active Substance: DEXAMETHASONE
     Dosage: ONGOING = NOT CHECKED
     Dates: start: 20180723, end: 20181017
  35. PANTOPRAZOLE SODIUM [Concomitant]
     Active Substance: PANTOPRAZOLE SODIUM
     Dosage: ONGOING = CHECKED
  36. VIBRAMYCIN [Concomitant]
     Active Substance: DOXYCYCLINE
     Indication: Sinusitis
     Dosage: ONGOING = NOT CHECKED
     Dates: start: 20180417, end: 20180615
  37. RANITIDINE HYDROCHLORIDE [Concomitant]
     Active Substance: RANITIDINE HYDROCHLORIDE
     Dosage: UNK
     Dates: start: 20170414, end: 20191119
  38. DIMETHINDENE [Concomitant]
     Active Substance: DIMETHINDENE
     Dosage: ONGOING = CHECKED
     Dates: start: 20170414
  39. DEXABENE [Concomitant]
     Dosage: UNK
     Dates: start: 20181107
  40. HYDROCHLOROTHIAZIDE\RAMIPRIL [Concomitant]
     Active Substance: HYDROCHLOROTHIAZIDE\RAMIPRIL
     Dosage: ONGOING = CHECKED
  41. HYDROCHLOROTHIAZIDE\RAMIPRIL [Concomitant]
     Active Substance: HYDROCHLOROTHIAZIDE\RAMIPRIL
     Dosage: UNK
     Dates: start: 20200424
  42. KYTRIL [Concomitant]
     Active Substance: GRANISETRON HYDROCHLORIDE
     Dosage: ONGOING = CHECKED
     Dates: start: 20180608
  43. CORTISONE ACETATE [Concomitant]
     Active Substance: CORTISONE ACETATE
     Dosage: ONGOING = NOT CHECKED
     Dates: start: 20180608, end: 20180608
  44. CALCIUM CARBONATE\CHOLECALCIFEROL [Concomitant]
     Active Substance: CALCIUM CARBONATE\CHOLECALCIFEROL
     Dosage: UNK
     Dates: start: 20170505, end: 20190615
  45. XGEVA [Concomitant]
     Active Substance: DENOSUMAB
     Dosage: UNK
     Dates: start: 20170505, end: 20180329
  46. XGEVA [Concomitant]
     Active Substance: DENOSUMAB
     Dosage: UNK
     Dates: start: 20181017
  47. METHYLPREDNISOLONE [Concomitant]
     Active Substance: METHYLPREDNISOLONE
     Dosage: UNK
     Dates: start: 20191210
  48. ASPIRIN [Concomitant]
     Active Substance: ASPIRIN
     Indication: Hypertension
     Dosage: UNK
     Dates: start: 20171120, end: 20190615
  49. TORSEMIDE [Concomitant]
     Active Substance: TORSEMIDE
     Indication: Product used for unknown indication
     Dosage: UNK
  50. FOSTER [Concomitant]
     Active Substance: BECLOMETHASONE\FORMOTEROL
     Indication: Dyspnoea
     Dosage: ONGOING=CHECKED
     Route: 065
     Dates: start: 20171120
  51. ANDOL [Concomitant]
     Active Substance: ASPIRIN
     Indication: Product used for unknown indication
     Dosage: UNK
  52. DEXAMETHASONE [Concomitant]
     Active Substance: DEXAMETHASONE
     Indication: Product used for unknown indication
     Dosage: UNK
     Route: 065
     Dates: start: 20170414, end: 20170514
  53. BISOPROLOL FUMARATE [Concomitant]
     Active Substance: BISOPROLOL FUMARATE
     Indication: Hypertension
     Dosage: ONGOING=NOT CHECKED
     Route: 065
     Dates: start: 20171213, end: 20180715
  54. ACETAMINOPHEN [Concomitant]
     Active Substance: ACETAMINOPHEN
     Dosage: ONGOING = CHECKED
     Route: 065
     Dates: start: 20180715
  55. AVELOX [Concomitant]
     Active Substance: MOXIFLOXACIN HYDROCHLORIDE
     Indication: Dyspnoea exertional
     Dosage: ONGOING= NOT CHECKED
     Route: 065
     Dates: start: 20180712, end: 20180722
  56. LOVENOX [Concomitant]
     Active Substance: ENOXAPARIN SODIUM
     Indication: Dyspnoea exertional
     Dosage: ONGOIN=NOT CHECKED
     Route: 065
     Dates: start: 20180615, end: 20180713
  57. MEROPENEM [Concomitant]
     Active Substance: MEROPENEM
     Indication: Dyspnoea exertional
     Dosage: ONGOING=NOT CHECKED
     Route: 065
     Dates: start: 20180705, end: 20180712
  58. POLYETHYLENE GLYCOL 3350\POTASSIUM CHLORIDE\SODIUM BICARBONATE\SODIUM [Concomitant]
     Active Substance: POLYETHYLENE GLYCOL 3350\POTASSIUM CHLORIDE\SODIUM BICARBONATE\SODIUM CHLORIDE
     Dosage: ONGOING = CHECKED
     Route: 065
     Dates: start: 20180715
  59. METAMIZOLE [Concomitant]
     Active Substance: METAMIZOLE
     Indication: Dyspnoea exertional
     Dosage: ONGOING = CHECKED
     Route: 065
     Dates: start: 20180715
  60. PANTOPRAZOLE SODIUM [Concomitant]
     Active Substance: PANTOPRAZOLE SODIUM
     Dosage: UNK

REACTIONS (15)
  - Dyspnoea exertional [Recovered/Resolved]
  - Ill-defined disorder [Recovered/Resolved]
  - Polyneuropathy [Unknown]
  - Pain [Recovered/Resolved]
  - Pyrexia [Not Recovered/Not Resolved]
  - Flank pain [Recovered/Resolved]
  - Renal pain [Recovered/Resolved]
  - Diarrhoea [Recovered/Resolved]
  - Paraesthesia [Recovered/Resolved]
  - Ejection fraction decreased [Recovered/Resolved]
  - Dyspnoea [Recovered/Resolved]
  - Hypertension [Recovered/Resolved]
  - Sinusitis [Recovered/Resolved]
  - Fatigue [Recovered/Resolved]
  - Dysgeusia [Recovered/Resolved]

NARRATIVE: CASE EVENT DATE: 20171030
